FAERS Safety Report 25903886 (Version 1)
Quarter: 2025Q4

REPORT INFORMATION
  Report Type: Spontaneous
  Country: EU (occurrence: EU)
  Receive Date: 20251010
  Receipt Date: 20251010
  Transmission Date: 20260117
  Serious: Yes (Hospitalization)
  Sender: ACCORD
  Company Number: None

PATIENT
  Age: 65 Year
  Sex: Female

DRUGS (3)
  1. PACLITAXEL [Suspect]
     Active Substance: PACLITAXEL
     Indication: Product used for unknown indication
     Dosage: THERAPEUTIC LINE ACCORDING TO THE CBDCA + TAXOL + BEVACIZUMAB SCHEME STARTED ON 23.07.2025
     Dates: start: 20250828
  2. CARBOPLATIN [Concomitant]
     Active Substance: CARBOPLATIN
  3. BEVACIZUMAB [Concomitant]
     Active Substance: BEVACIZUMAB

REACTIONS (4)
  - Dysgeusia [Recovered/Resolved]
  - Presyncope [Recovered/Resolved]
  - Tonic clonic movements [Recovered/Resolved]
  - Syncope [Recovered/Resolved]

NARRATIVE: CASE EVENT DATE: 20250828
